FAERS Safety Report 16538958 (Version 1)
Quarter: 2019Q3

REPORT INFORMATION
  Report Type: Spontaneous
  Country: ES (occurrence: ES)
  Receive Date: 20190708
  Receipt Date: 20190708
  Transmission Date: 20191004
  Serious: Yes (Other)
  Sender: FDA-Public Use
  Company Number: ES-009507513-1907ESP001665

PATIENT
  Age: 74 Year
  Sex: Male

DRUGS (1)
  1. PEMBROLIZUMAB. [Suspect]
     Active Substance: PEMBROLIZUMAB
     Indication: LUNG NEOPLASM MALIGNANT
     Dosage: 200 MG/3 W
     Route: 041
     Dates: start: 20190220, end: 20190424

REACTIONS (1)
  - Guttate psoriasis [Recovering/Resolving]

NARRATIVE: CASE EVENT DATE: 20190429
